FAERS Safety Report 20885497 (Version 1)
Quarter: 2022Q2

REPORT INFORMATION
  Report Type: Spontaneous
  Country: US (occurrence: US)
  Receive Date: 20220527
  Receipt Date: 20220527
  Transmission Date: 20220721
  Serious: No
  Sender: FDA-Public Use
  Company Number: US-GLAXOSMITHKLINE-USCH2022AMR018031

PATIENT
  Sex: Male

DRUGS (7)
  1. IBUPROFEN [Suspect]
     Active Substance: IBUPROFEN
     Indication: Sciatica
     Dosage: UNK
     Dates: start: 20211104, end: 20211109
  2. IBUPROFEN [Suspect]
     Active Substance: IBUPROFEN
     Indication: Sciatica
     Dosage: UNK, TID
     Dates: start: 20220204, end: 20220209
  3. PREDNISONE [Concomitant]
     Active Substance: PREDNISONE
     Indication: Sciatica
     Dosage: UNK
     Dates: start: 20211104, end: 20211109
  4. BACLOFEN [Concomitant]
     Active Substance: BACLOFEN
     Indication: Sciatica
     Dosage: UNK
     Dates: start: 20211104, end: 20211109
  5. GABAPENTIN [Concomitant]
     Active Substance: GABAPENTIN
     Indication: Sciatica
     Dosage: UNK
     Dates: start: 20211230
  6. MEDROL [Concomitant]
     Active Substance: METHYLPREDNISOLONE
     Indication: Product used for unknown indication
     Dosage: UNK
     Dates: start: 20220204, end: 20220209
  7. METHOCARBAMOL [Concomitant]
     Active Substance: METHOCARBAMOL
     Indication: Product used for unknown indication
     Dosage: UNK, TID
     Dates: start: 20220204, end: 20220209

REACTIONS (1)
  - Drug ineffective [Unknown]
